FAERS Safety Report 18606772 (Version 2)
Quarter: 2021Q1

REPORT INFORMATION
  Report Type: Spontaneous
  Country: FR (occurrence: FR)
  Receive Date: 20201211
  Receipt Date: 20210330
  Transmission Date: 20210419
  Serious: Yes (Other)
  Sender: FDA-Public Use
  Company Number: NVSC2020FR323577

PATIENT
  Age: 51 Year
  Sex: Female
  Weight: 83 kg

DRUGS (7)
  1. TRAMADOL HYDROCHLORIDE. [Concomitant]
     Active Substance: TRAMADOL HYDROCHLORIDE
     Indication: PRODUCT USED FOR UNKNOWN INDICATION
     Dosage: 50 MG, Q6H
     Route: 048
     Dates: start: 20200824
  2. OMEPRAZOLE. [Concomitant]
     Active Substance: OMEPRAZOLE
     Indication: PRODUCT USED FOR UNKNOWN INDICATION
     Dosage: 20 MG, QD
     Route: 048
     Dates: start: 20200907
  3. PAROEX [Concomitant]
     Active Substance: CHLORHEXIDINE GLUCONATE
     Indication: PRODUCT USED FOR UNKNOWN INDICATION
     Dosage: 3 UNK,QD
     Route: 048
     Dates: start: 20200824
  4. CLINDAMYCIN HYDROCHLORIDE. [Concomitant]
     Active Substance: CLINDAMYCIN HYDROCHLORIDE
     Indication: PRODUCT USED FOR UNKNOWN INDICATION
     Dosage: 1800 MG, QD
     Route: 048
     Dates: start: 20200824
  5. OFLOXACIN. [Suspect]
     Active Substance: OFLOXACIN
     Indication: INFECTION PROPHYLAXIS
     Dosage: 200 MG, Q8H
     Route: 054
     Dates: start: 20200907, end: 20200916
  6. LEVOFLOXACIN. [Suspect]
     Active Substance: LEVOFLOXACIN
     Indication: INFECTION PROPHYLAXIS
     Dosage: 750 MG, QD
     Route: 048
     Dates: start: 20200824, end: 20200907
  7. LEVOFLOXACIN. [Suspect]
     Active Substance: LEVOFLOXACIN
     Dosage: 750 MG, QD
     Route: 054
     Dates: start: 20200907, end: 20200916

REACTIONS (3)
  - Nausea [Recovered/Resolved]
  - Musculoskeletal pain [Recovered/Resolved]
  - Vomiting [Recovered/Resolved]

NARRATIVE: CASE EVENT DATE: 20200901
